FAERS Safety Report 24117272 (Version 1)
Quarter: 2024Q3

REPORT INFORMATION
  Report Type: Spontaneous
  Country: JP (occurrence: JP)
  Receive Date: 20240722
  Receipt Date: 20240722
  Transmission Date: 20241016
  Serious: Yes (Death, Other)
  Sender: BOEHRINGER INGELHEIM
  Company Number: JP-NBI-2024-BI-040816

PATIENT

DRUGS (1)
  1. OFEV [Suspect]
     Active Substance: NINTEDANIB
     Indication: Product used for unknown indication

REACTIONS (18)
  - Pulmonary hypertension [Fatal]
  - Cardiac failure [Fatal]
  - Gastrointestinal haemorrhage [Fatal]
  - Interstitial lung disease [Fatal]
  - Cerebral haemorrhage [Unknown]
  - Gastrointestinal perforation [Unknown]
  - Pulmonary hypertension [Unknown]
  - Pancreatitis acute [Unknown]
  - Lung neoplasm malignant [Unknown]
  - Pneumothorax [Unknown]
  - Pneumonia [Unknown]
  - Renal disorder [Unknown]
  - Rash [Unknown]
  - Alopecia [Unknown]
  - Malaise [Unknown]
  - Abdominal discomfort [Unknown]
  - Liver disorder [Unknown]
  - KL-6 increased [Unknown]
